FAERS Safety Report 6311366-X (Version None)
Quarter: 2009Q3

REPORT INFORMATION
  Report Type: 
  Country: None (occurrence: None)
  Receive Date: 20090817
  Receipt Date: 20090805
  Transmission Date: 20100115
  Serious: Yes (Other)
  Sender: FDA-Public Use
  Company Number: EC-ELI_LILLY_AND_COMPANY-EC200908001436

PATIENT
  Age: 56 Year
  Sex: Female

DRUGS (2)
  1. GEMCITABINE HCL [Suspect]
     Indication: OVARIAN CANCER
     Dosage: 1000 MG/M2, 2/M
     Route: 065
     Dates: start: 20090622
  2. OXALIPLATIN [Concomitant]
     Dosage: 130 MG, UNKNOWN
     Route: 065

REACTIONS (4)
  - DYSPNOEA [None]
  - FLUSHING [None]
  - LARYNGEAL OEDEMA [None]
  - RASH [None]
